FAERS Safety Report 16806521 (Version 2)
Quarter: 2019Q4

REPORT INFORMATION
  Report Type: Spontaneous
  Country: US (occurrence: US)
  Receive Date: 20190913
  Receipt Date: 20191118
  Transmission Date: 20200122
  Serious: No
  Sender: FDA-Public Use
  Company Number: US-BAUSCH-BL-2019-023950

PATIENT
  Age: 27 Year
  Sex: Male
  Weight: 81.72 kg

DRUGS (3)
  1. WELLBUTRIN XL [Suspect]
     Active Substance: BUPROPION HYDROCHLORIDE
     Indication: UNEVALUABLE EVENT
     Dosage: APPROXIMATELY 1 WEEK AGO, THE PATIENT RECEIVED A REFILL OF HIS PRESCRIPTION; BOTTLE WAS NOW SQUARE
     Route: 048
     Dates: start: 201908, end: 20190815
  2. WELLBUTRIN XL [Suspect]
     Active Substance: BUPROPION HYDROCHLORIDE
     Indication: GENERALISED ANXIETY DISORDER
     Dosage: START DATE: OVER 4 YEARS AGO; ROUND BOTTLE
     Route: 048
  3. LEXAPRO [Concomitant]
     Active Substance: ESCITALOPRAM OXALATE
     Indication: PRODUCT USED FOR UNKNOWN INDICATION
     Route: 048

REACTIONS (5)
  - Feeling abnormal [Recovering/Resolving]
  - Vertigo [Recovering/Resolving]
  - Neck pain [Recovering/Resolving]
  - Anxiety [Recovering/Resolving]
  - Product quality issue [Unknown]

NARRATIVE: CASE EVENT DATE: 201908
